FAERS Safety Report 5133524-2 (Version None)
Quarter: 2006Q4

REPORT INFORMATION
  Report Type: 
  Country: None (occurrence: None)
  Receive Date: 20061024
  Receipt Date: 20050210
  Transmission Date: 20070319
  Serious: No
  Sender: FDA-Public Use
  Company Number: US-BRISTOL-MYERS SQUIBB COMPANY-12856456

PATIENT
  Sex: Male

DRUGS (1)
  1. TRIMOX [Suspect]
     Route: 048
     Dates: start: 20050128, end: 20050204

REACTIONS (1)
  - DRUG INEFFECTIVE [None]
